FAERS Safety Report 13928799 (Version 1)
Quarter: 2017Q3

REPORT INFORMATION
  Report Type: Spontaneous
  Country: US (occurrence: None)
  Receive Date: 20170901
  Receipt Date: 20170901
  Transmission Date: 20171127
  Serious: No
  Sender: FDA-Public Use
  Company Number: None

PATIENT
  Age: 64 Year
  Sex: Male

DRUGS (1)
  1. ENVARSUS XR [Suspect]
     Active Substance: TACROLIMUS

REACTIONS (5)
  - Renal cyst [None]
  - Bradyphrenia [None]
  - Dysarthria [None]
  - Anxiety [None]
  - Memory impairment [None]

NARRATIVE: CASE EVENT DATE: 20170830
